FAERS Safety Report 4304458-8 (Version None)
Quarter: 2004Q1

REPORT INFORMATION
  Report Type: 
  Country: None (occurrence: None)
  Receive Date: 20040225
  Receipt Date: 20040225
  Transmission Date: 20041129
  Serious: Yes (Hospitalization)
  Sender: FDA-Public Use
  Company Number: None

PATIENT
  Sex: Male

DRUGS (1)
  1. OLANZAPINE [Suspect]
     Dosage: 5 MG ORAL
     Route: 048
     Dates: start: 20030922, end: 20040207

REACTIONS (4)
  - DYSPNOEA [None]
  - FALL [None]
  - MUSCLE RIGIDITY [None]
  - NEUROLEPTIC MALIGNANT SYNDROME [None]
